FAERS Safety Report 10476663 (Version 6)
Quarter: 2015Q3

REPORT INFORMATION
  Report Type: Report from Study
  Country: GB (occurrence: GB)
  Receive Date: 20140925
  Receipt Date: 20150731
  Transmission Date: 20151125
  Serious: Yes (Hospitalization, Other)
  Sender: FDA-Public Use
  Company Number: GB-CELGENE-167-50794-14083159

PATIENT
  Age: 66 Year
  Sex: Female
  Weight: 81 kg

DRUGS (6)
  1. VORINOSTAT [Suspect]
     Active Substance: VORINOSTAT
     Route: 048
     Dates: start: 20140508, end: 20141007
  2. CO-AMOXICLAV [Concomitant]
     Active Substance: AMOXICILLIN\CLAVULANIC ACID
     Indication: BACTERIAL INFECTION
     Route: 065
     Dates: start: 20140722, end: 20140728
  3. VIDAZA [Suspect]
     Active Substance: AZACITIDINE
     Indication: ACUTE MYELOID LEUKAEMIA
     Route: 058
     Dates: start: 20140506, end: 20140610
  4. VORINOSTAT [Suspect]
     Active Substance: VORINOSTAT
     Indication: ACUTE MYELOID LEUKAEMIA
     Route: 048
     Dates: start: 20140508, end: 20140610
  5. CLARITHROMYCIN. [Concomitant]
     Active Substance: CLARITHROMYCIN
     Indication: BACTERIAL INFECTION
     Route: 065
     Dates: start: 20140722, end: 20140728
  6. VIDAZA [Suspect]
     Active Substance: AZACITIDINE
     Route: 058
     Dates: start: 20140506, end: 20141007

REACTIONS (6)
  - Musculoskeletal chest pain [Recovered/Resolved]
  - Lower respiratory tract infection [Recovered/Resolved]
  - Lower respiratory tract infection [Recovered/Resolved]
  - Pleuritic pain [Recovered/Resolved]
  - Dyspnoea [Recovered/Resolved]
  - Febrile neutropenia [Recovered/Resolved]

NARRATIVE: CASE EVENT DATE: 20140627
